FAERS Safety Report 16351384 (Version 1)
Quarter: 2019Q2

REPORT INFORMATION
  Report Type: Spontaneous
  Country: GB (occurrence: GB)
  Receive Date: 20190524
  Receipt Date: 20190524
  Transmission Date: 20190711
  Serious: Yes (Other)
  Sender: FDA-Public Use
  Company Number: GB-ACCORD-128869

PATIENT
  Age: 33 Year
  Sex: Male
  Weight: 54.45 kg

DRUGS (3)
  1. AMISULPRIDE [Concomitant]
     Active Substance: AMISULPRIDE
  2. CLOZAPINE. [Suspect]
     Active Substance: CLOZAPINE
     Indication: SCHIZOPHRENIA
     Dosage: TITRATED UP TO 275MG
     Route: 048
     Dates: start: 20190305, end: 20190324
  3. OLANZAPINE. [Concomitant]
     Active Substance: OLANZAPINE

REACTIONS (5)
  - Tachycardia [Recovering/Resolving]
  - Dyspnoea [Recovering/Resolving]
  - Chest pain [Recovering/Resolving]
  - Pericarditis [Recovering/Resolving]
  - Pyrexia [Recovering/Resolving]

NARRATIVE: CASE EVENT DATE: 20190322
